FAERS Safety Report 9232908 (Version 1)
Quarter: 2013Q2

REPORT INFORMATION
  Report Type: Spontaneous
  Country: US (occurrence: None)
  Receive Date: 20130415
  Receipt Date: 20130415
  Transmission Date: 20140414
  Serious: Yes (Hospitalization, Other)
  Sender: FDA-Public Use
  Company Number: None

PATIENT
  Age: 55 Year
  Sex: 0
  Weight: 108.86 kg

DRUGS (1)
  1. CIPRO 500 MG COBRA [Suspect]
     Indication: BRONCHITIS
     Route: 048
     Dates: start: 20121010, end: 20121020

REACTIONS (4)
  - Abasia [None]
  - Muscular weakness [None]
  - Walking aid user [None]
  - Pain [None]
